FAERS Safety Report 21559584 (Version 2)
Quarter: 2022Q4

REPORT INFORMATION
  Report Type: Spontaneous
  Country: JP (occurrence: JP)
  Receive Date: 20221107
  Receipt Date: 20221118
  Transmission Date: 20230113
  Serious: Yes (Hospitalization, Other)
  Sender: FDA-Public Use
  Company Number: JP-MSD-M2022-47100

PATIENT
  Age: 64 Year
  Sex: Male

DRUGS (3)
  1. LAGEVRIO [Suspect]
     Active Substance: MOLNUPIRAVIR
     Indication: COVID-19 treatment
     Dosage: 800 MILLIGRAM, 5 TIMES PER DAY
     Route: 048
     Dates: start: 20220819
  2. CALONAL [Concomitant]
     Active Substance: ACETAMINOPHEN
     Dosage: 400 MILLIGRAM, TEN TIMES A DAY
     Route: 048
     Dates: start: 20220819
  3. CELESTAMINE [Concomitant]
     Active Substance: BETAMETHASONE\DEXCHLORPHENIRAMINE MALEATE
     Dosage: 2 DOSAGE FORM, QD
     Route: 048
     Dates: start: 20220819

REACTIONS (4)
  - Pneumonia aspiration [Recovered/Resolved]
  - Vomiting [Recovered/Resolved]
  - Product use issue [Unknown]
  - Overdose [Unknown]

NARRATIVE: CASE EVENT DATE: 20220801
